FAERS Safety Report 4343604-7 (Version None)
Quarter: 2004Q2

REPORT INFORMATION
  Report Type: 
  Country: None (occurrence: None)
  Receive Date: 20040421
  Receipt Date: 20040421
  Transmission Date: 20050107
  Serious: Yes (Life-Threatening, Hospitalization)
  Sender: FDA-Public Use
  Company Number: None

PATIENT
  Age: 74 Year
  Sex: Male
  Weight: 78.4 kg

DRUGS (8)
  1. METRONIDAZOLE [Suspect]
     Indication: CLOSTRIDIUM COLITIS
     Dosage: 250 MG PO QID
     Route: 048
     Dates: start: 20040325, end: 20040404
  2. OMEPRAZOLE [Concomitant]
  3. METRONIDAZOLE [Concomitant]
  4. PREDNISONE [Concomitant]
  5. ZAFIRLUKAST [Concomitant]
  6. PENTOXIFYLLINE [Concomitant]
  7. GLIPIZIDE [Concomitant]
  8. SIMVASTATIN [Concomitant]

REACTIONS (1)
  - THROMBOCYTOPENIA [None]
